FAERS Safety Report 7080979-2 (Version None)
Quarter: 2010Q4

REPORT INFORMATION
  Report Type: 
  Country: None (occurrence: None)
  Receive Date: 20101103
  Receipt Date: 20101026
  Transmission Date: 20110411
  Serious: No
  Sender: FDA-Public Use
  Company Number: US-B.I. PHARMACEUTICALS,INC./RIDGEFIELD-2010-BP-12026BP

PATIENT
  Age: 85 Year
  Sex: Female

DRUGS (5)
  1. MICARDIS [Suspect]
     Indication: HYPERTENSION
     Dosage: 20 MG
     Route: 048
     Dates: start: 20100801, end: 20100901
  2. MICARDIS [Suspect]
     Dosage: 80 MG
     Route: 048
     Dates: start: 20100901
  3. METFORMIN [Concomitant]
     Indication: DIABETES MELLITUS
  4. IBUPROFEN [Concomitant]
     Indication: BACK PAIN
  5. VITAMINS [Concomitant]
     Indication: PROPHYLAXIS

REACTIONS (4)
  - BACK PAIN [None]
  - DRUG INEFFECTIVE [None]
  - FALL [None]
  - GAIT DISTURBANCE [None]
